FAERS Safety Report 16576734 (Version 4)
Quarter: 2019Q3

REPORT INFORMATION
  Report Type: Spontaneous
  Country: JP (occurrence: JP)
  Receive Date: 20190716
  Receipt Date: 20190923
  Transmission Date: 20191004
  Serious: Yes (Other)
  Sender: FDA-Public Use
  Company Number: JP-AMGEN-JPNSP2019100047

PATIENT
  Age: 92 Year
  Sex: Female
  Weight: 36 kg

DRUGS (11)
  1. HACHIMIJIOGAN [Concomitant]
     Active Substance: HERBALS
     Indication: ASTHENIA
     Dosage: 2.5 GRAM, BID
     Dates: start: 20190520
  2. EVENITY [Suspect]
     Active Substance: ROMOSOZUMAB-AQQG
     Indication: SPINAL COMPRESSION FRACTURE
  3. FAMOTIDINE. [Concomitant]
     Active Substance: FAMOTIDINE
     Indication: GASTROOESOPHAGEAL REFLUX DISEASE
     Dosage: 20 MILLIGRAM, QD
  4. NORVASC [Concomitant]
     Active Substance: AMLODIPINE BESYLATE
     Indication: HYPERTENSION
     Dosage: 2.5 MILLIGRAM, QD
     Dates: end: 20190809
  5. EDIROL [Concomitant]
     Active Substance: ELDECALCITOL
     Indication: OSTEOPOROSIS
     Dosage: 0.75 MICROGRAM, QD
     Dates: start: 20190525, end: 20190810
  6. BLOPRESS [Concomitant]
     Active Substance: CANDESARTAN CILEXETIL
     Indication: HYPERTENSION
     Dosage: 2 MILLIGRAM, QD
     Dates: start: 20190810
  7. EVENITY [Suspect]
     Active Substance: ROMOSOZUMAB-AQQG
     Indication: OSTEOPOROSIS
     Dosage: 210 MILLIGRAM, QMO
     Route: 058
     Dates: start: 20190604, end: 20190705
  8. BETANIS [Concomitant]
     Active Substance: MIRABEGRON
     Indication: HYPERTONIC BLADDER
     Dosage: 50 MILLIGRAM, QD
     Dates: end: 20190809
  9. FEBURIC [Concomitant]
     Active Substance: FEBUXOSTAT
     Indication: HYPERURICAEMIA
     Dosage: 20 MILLIGRAM, QD
     Dates: start: 20180706
  10. SOLITA T GRANULES NO.3 [Concomitant]
     Indication: DEHYDRATION
     Dosage: 3 GRAM, QD
     Dates: start: 20190803
  11. GOREISAN [ALISMA PLANTAGO-AQUATICA VAR. ORIENTALE TUBER;ATRACTYLODES L [Concomitant]
     Dosage: 2.5 GRAM, QD

REACTIONS (9)
  - Altered state of consciousness [Recovering/Resolving]
  - Neck pain [Unknown]
  - Therapeutic response unexpected [Unknown]
  - Contusion [Recovered/Resolved]
  - Fall [Unknown]
  - Renal impairment [Not Recovered/Not Resolved]
  - Haemorrhage subcutaneous [Unknown]
  - Epistaxis [Recovered/Resolved]
  - Oral discomfort [Recovered/Resolved]

NARRATIVE: CASE EVENT DATE: 201906
